FAERS Safety Report 26091591 (Version 3)
Quarter: 2025Q4

REPORT INFORMATION
  Report Type: Spontaneous
  Country: US (occurrence: US)
  Receive Date: 20251126
  Receipt Date: 20251224
  Transmission Date: 20260117
  Serious: No
  Sender: TELIX PHARMACEUTICALS
  Company Number: US-TLX-2025000118

PATIENT
  Age: 83 Year
  Sex: Male
  Weight: 77.11 kg

DRUGS (1)
  1. ILLUCCIX [Suspect]
     Active Substance: GALLIUM GA-68 GOZETOTIDE
     Indication: Diagnostic procedure
     Dosage: REQUESTED DOSE: 5.0 MCI;?DISPENSED: 5.1 MCI;?VOLUME: 6.6 ML;?CALIBRATION TIME:1:00 PM
     Route: 040
     Dates: start: 20250926, end: 20250926

REACTIONS (3)
  - Vision blurred [Unknown]
  - Fatigue [Unknown]
  - Injection site pain [Not Recovered/Not Resolved]

NARRATIVE: CASE EVENT DATE: 20250901
